FAERS Safety Report 5412553-5 (Version None)
Quarter: 2007Q3

REPORT INFORMATION
  Report Type: 
  Country: None (occurrence: None)
  Receive Date: 20070813
  Receipt Date: 20070809
  Transmission Date: 20080115
  Serious: Yes (Hospitalization)
  Sender: FDA-Public Use
  Company Number: D0054244A

PATIENT
  Age: 71 Year
  Sex: Male
  Weight: 101 kg

DRUGS (3)
  1. AVANDAMET [Suspect]
     Dosage: 1004MG TWICE PER DAY
     Route: 048
     Dates: start: 20050210, end: 20070504
  2. BISOPROLOL [Concomitant]
     Indication: HYPERTENSION
     Dosage: 5MG UNKNOWN
     Route: 048
     Dates: start: 20050701
  3. PRAVASTATIN [Concomitant]
     Dosage: 10MG UNKNOWN
     Route: 048
     Dates: start: 20040401

REACTIONS (1)
  - CEREBROVASCULAR ACCIDENT [None]
